FAERS Safety Report 10156441 (Version 3)
Quarter: 2015Q2

REPORT INFORMATION
  Report Type: Spontaneous
  Country: US (occurrence: None)
  Receive Date: 20140505
  Receipt Date: 20150521
  Transmission Date: 20150821
  Serious: Yes (Other)
  Sender: FDA-Public Use
  Company Number: 2014US002752

PATIENT
  Age: 59 Year
  Sex: Male

DRUGS (21)
  1. ASPIRIN (ACETYLICYLIC ACID) [Concomitant]
  2. SERTRALINE (SETRALINE) [Concomitant]
  3. MORPHINE [Concomitant]
     Active Substance: MORPHINE
  4. TIOTROPIUM (TIOTROPIUM) (TIOTROPIUM) [Concomitant]
     Active Substance: TIOTROPIUM
  5. ALBUTEROL /00139501/ (SALBUTAMOL) [Concomitant]
  6. LISINOPRIL HYDROCHLORTHIAZID (HYDROCHLOROTHIAZIDE, LISINOPRIL) [Concomitant]
  7. PROBIOTICS NOS (PROBIOTICS NOS) [Concomitant]
  8. ALEDRONATE (ALENDRONATE SODIUM) [Concomitant]
  9. FENTANYL (FENTANYL) [Concomitant]
     Active Substance: FENTANYL
  10. HYDROCODONE (HYDROCODONE) [Concomitant]
     Active Substance: HYDROCODONE
  11. HYDROXYCHLOROQUINE (HYDROXYCHLOROQUINE) (HYDROCHLOROQUINE) [Concomitant]
     Active Substance: HYDROXYCHLOROQUINE
  12. POTASSIUM CHLORIDE (POTASSIUM CHLORIDE) [Concomitant]
     Active Substance: POTASSIUM CHLORIDE
  13. GLASSIA [Suspect]
     Active Substance: .ALPHA.1-PROTEINASE INHIBITOR HUMAN
     Indication: ALPHA-1 ANTI-TRYPSIN DEFICIENCY
     Route: 042
     Dates: start: 201402
  14. ALPRAZOLAM (ALPRAZOLAM) [Concomitant]
     Active Substance: ALPRAZOLAM
  15. SULFASALAZINE (SULFASALAZINE) [Concomitant]
     Active Substance: SULFASALAZINE
  16. AZITHROMYCIN [Concomitant]
     Active Substance: AZITHROMYCIN ANHYDROUS
  17. MAGNESIUM (MAGNESIUM) [Concomitant]
     Active Substance: MAGNESIUM
  18. MULTIVITAMIN /00097801/ (ACORBIC ACID, CALCIUM PANTOTHENATE, ERGOCALCIFEROL, NICOTINAMIDE, PYRIDOXINE HYDROCHLORIDE, RETINOL, RIBOFLAVIN, THIAMINE HYDROHCHLORIDE) [Concomitant]
  19. SPIRIVA [Concomitant]
     Active Substance: TIOTROPIUM BROMIDE MONOHYDRATE
  20. PROAIR HFA [Concomitant]
     Active Substance: ALBUTEROL SULFATE
  21. SYMBICORT [Concomitant]
     Active Substance: BUDESONIDE\FORMOTEROL FUMARATE DIHYDRATE

REACTIONS (8)
  - Nasopharyngitis [None]
  - Dyspnoea [None]
  - Depression [None]
  - Dysphagia [None]
  - Dysphonia [None]
  - Vocal cord disorder [None]
  - Intraocular pressure increased [None]
  - Body temperature increased [None]

NARRATIVE: CASE EVENT DATE: 20140208
